FAERS Safety Report 5754355-6 (Version None)
Quarter: 2008Q2

REPORT INFORMATION
  Report Type: 
  Country: None (occurrence: None)
  Receive Date: 20080530
  Receipt Date: 20080519
  Transmission Date: 20081010
  Serious: Yes (Other)
  Sender: FDA-Public Use
  Company Number: IE-PFIZER INC-2008020162

PATIENT
  Sex: Female
  Weight: 60.3 kg

DRUGS (1)
  1. CHANTIX [Suspect]
     Indication: SMOKING CESSATION THERAPY
     Route: 048

REACTIONS (5)
  - AGGRESSION [None]
  - HOMICIDAL IDEATION [None]
  - IMPATIENCE [None]
  - PERSONALITY CHANGE [None]
  - THINKING ABNORMAL [None]
